FAERS Safety Report 8421979-7 (Version None)
Quarter: 2012Q2

REPORT INFORMATION
  Report Type: 
  Country: None (occurrence: None)
  Receive Date: 20120608
  Receipt Date: 20120605
  Transmission Date: 20120825
  Serious: Yes (Hospitalization)
  Sender: FDA-Public Use
  Company Number: DE-PFIZER INC-2012134293

PATIENT
  Age: 77 Year
  Sex: Male
  Weight: 118.4 kg

DRUGS (4)
  1. ANCO [Concomitant]
     Indication: CELLULITIS
     Dosage: 600 MG, 3X/DAY
     Route: 048
     Dates: start: 20120508, end: 20120511
  2. CLINDAMYCIN HCL [Suspect]
     Indication: CELLULITIS
     Dosage: 600 MG, 3X/DAY
     Route: 048
     Dates: start: 20120508, end: 20120525
  3. DIPYRONE TAB [Concomitant]
     Indication: CELLULITIS
     Dosage: UNK
     Dates: start: 20120508, end: 20120511
  4. TRAMADOLOR ^HEXAL^ [Concomitant]
     Indication: CELLULITIS
     Dosage: 200 MG, 1X/DAY
     Route: 048
     Dates: start: 20120508, end: 20120511

REACTIONS (2)
  - DRUG ERUPTION [None]
  - RASH MACULAR [None]
